FAERS Safety Report 13908945 (Version 1)
Quarter: 2017Q3

REPORT INFORMATION
  Report Type: Spontaneous
  Country: GB (occurrence: GB)
  Receive Date: 20170828
  Receipt Date: 20170828
  Transmission Date: 20171127
  Serious: Yes (Other)
  Sender: FDA-Public Use
  Company Number: GB-ACCORD-057500

PATIENT
  Sex: Female

DRUGS (2)
  1. DIAMORPHINE [Concomitant]
     Active Substance: DIAMORPHINE
     Indication: PRODUCT USED FOR UNKNOWN INDICATION
  2. TRAMADOL/TRAMADOL HYDROCHLORIDE [Suspect]
     Active Substance: TRAMADOL HYDROCHLORIDE
     Indication: PRODUCT USED FOR UNKNOWN INDICATION
     Dosage: 10 TABLETS EACH IN MORNING, AFTERNOON AND EVENING
     Route: 048
     Dates: start: 2016, end: 2016

REACTIONS (5)
  - Drug tolerance [Unknown]
  - Dependence [Recovered/Resolved]
  - Overdose [Unknown]
  - Drug abuse [Unknown]
  - Prescription drug used without a prescription [Unknown]
